FAERS Safety Report 8611571-3 (Version None)
Quarter: 2012Q3

REPORT INFORMATION
  Report Type: 
  Country: None (occurrence: None)
  Receive Date: 20120822
  Receipt Date: 20120814
  Transmission Date: 20120928
  Serious: Yes (Other)
  Sender: FDA-Public Use
  Company Number: PHHY2012DE058767

PATIENT
  Age: 77 Year
  Sex: Male

DRUGS (8)
  1. RISPERIDONE [Suspect]
     Dosage: 0.25 MG, BID
  2. RISPERIDONE [Suspect]
     Dosage: 1.5 MG, DAILY
  3. MEMANTINE HCL [Concomitant]
     Dosage: 20 MG, QD
  4. METOPROLOL SUCCINATE [Concomitant]
     Dosage: 47.5 MG, QD
  5. ASPIRIN [Concomitant]
     Dosage: 100 MG,
  6. RISPERIDONE [Suspect]
     Dosage: 0.25 MG, TID
  7. DIGITOXIN TAB [Concomitant]
     Dosage: 0.07 MG, QD, FROM MONDAY TO FRIDAY, BREAK AT THE WEEKEND
  8. TORSEMIDE [Concomitant]
     Dosage: 5 MG, QD

REACTIONS (11)
  - PARKINSONISM [None]
  - PLEUROTHOTONUS [None]
  - EXTRAPYRAMIDAL DISORDER [None]
  - MUSCLE RIGIDITY [None]
  - DISORIENTATION [None]
  - POSTURE ABNORMAL [None]
  - PSYCHOTIC DISORDER [None]
  - HALLUCINATION, AUDITORY [None]
  - GAIT DISTURBANCE [None]
  - BRADYKINESIA [None]
  - PSYCHOMOTOR HYPERACTIVITY [None]
